FAERS Safety Report 5806003-4 (Version None)
Quarter: 2008Q3

REPORT INFORMATION
  Report Type: 
  Country: None (occurrence: None)
  Receive Date: 20080710
  Receipt Date: 20080704
  Transmission Date: 20090109
  Serious: Yes (Hospitalization)
  Sender: FDA-Public Use
  Company Number: B0528095A

PATIENT
  Age: 38 Year
  Sex: Female

DRUGS (2)
  1. AUGMENTIN '125' [Suspect]
     Indication: URINARY TRACT INFECTION
     Dosage: 1G SINGLE DOSE
     Route: 048
     Dates: start: 20080625, end: 20080625
  2. ADARTREL [Concomitant]
     Indication: DRUG USE FOR UNKNOWN INDICATION
     Dosage: .5MG PER DAY
     Route: 065

REACTIONS (7)
  - ANGIOEDEMA [None]
  - HOT FLUSH [None]
  - NASAL CONGESTION [None]
  - PAINFUL RESPIRATION [None]
  - PRURITUS [None]
  - SKIN LESION [None]
  - THROAT TIGHTNESS [None]
